FAERS Safety Report 4564165-3 (Version None)
Quarter: 2005Q1

REPORT INFORMATION
  Report Type: 
  Country: None (occurrence: None)
  Receive Date: 20050128
  Receipt Date: 20031121
  Transmission Date: 20050727
  Serious: Yes (Hospitalization, Other)
  Sender: FDA-Public Use
  Company Number: US-MERCK-0311USA02526

PATIENT
  Age: 61 Year
  Sex: Female
  Weight: 65 kg

DRUGS (33)
  1. VIOXX [Suspect]
     Indication: ARTHRITIS
     Route: 048
     Dates: start: 20010131, end: 20011110
  2. VIOXX [Suspect]
     Route: 048
  3. VIOXX [Suspect]
     Indication: PAIN
     Route: 048
     Dates: start: 20010131, end: 20011110
  4. VIOXX [Suspect]
     Route: 048
  5. PREVACID [Concomitant]
     Indication: GASTROOESOPHAGEAL REFLUX DISEASE
     Route: 065
  6. METHYLPREDNISOLONE [Concomitant]
     Indication: INFLAMMATION
     Route: 065
  7. ESTRADIOL [Concomitant]
     Indication: HORMONE REPLACEMENT THERAPY
     Route: 048
     Dates: start: 20010101, end: 20020101
  8. CLONAZEPAM [Concomitant]
     Indication: CONVULSION PROPHYLAXIS
     Route: 065
  9. VANTIN [Concomitant]
     Indication: ANTIBACTERIAL PROPHYLAXIS
     Route: 065
  10. MECLIZINE [Concomitant]
     Indication: MOTION SICKNESS
     Route: 065
  11. ACETAMINOPHEN AND HYDROCODONE BITARTRATE [Concomitant]
     Indication: ANALGESIC EFFECT
     Route: 065
     Dates: start: 20010101, end: 20010101
  12. SULFAMETHOXAZOLE AND TRIMETHOPRIM [Concomitant]
     Indication: URINARY TRACT INFECTION
     Route: 065
  13. SERZONE [Concomitant]
     Indication: DEPRESSION
     Route: 048
     Dates: start: 20010131, end: 20020101
  14. SERZONE [Concomitant]
     Route: 048
  15. ALBUTEROL [Concomitant]
     Indication: ASTHMA
     Route: 065
  16. ZYRTEC [Concomitant]
     Indication: HYPERSENSITIVITY
     Route: 065
  17. PREDNISONE [Concomitant]
     Indication: HYPERSENSITIVITY
     Route: 065
  18. CEPHALEXIN [Concomitant]
     Indication: ANTIBACTERIAL PROPHYLAXIS
     Route: 065
  19. AUGMENTIN [Concomitant]
     Indication: ANTIBACTERIAL PROPHYLAXIS
     Route: 065
  20. ALLEGRA [Concomitant]
     Indication: HYPERSENSITIVITY
     Route: 065
  21. FLONASE [Concomitant]
     Indication: HYPERSENSITIVITY
     Route: 065
  22. CYANOCOBALAMIN [Concomitant]
     Indication: ANAEMIA
     Route: 051
  23. CYANOCOBALAMIN [Concomitant]
     Indication: VITAMIN B12 DEFICIENCY
     Route: 051
  24. REMERON [Concomitant]
     Indication: DEPRESSION
     Route: 065
  25. ACIPHEX [Concomitant]
     Indication: GASTROOESOPHAGEAL REFLUX DISEASE
     Route: 065
  26. TEQUIN [Concomitant]
     Indication: ANTIBACTERIAL PROPHYLAXIS
     Route: 065
  27. DIOVAN [Concomitant]
     Route: 048
  28. VERAPAMIL MSD LP [Concomitant]
     Route: 048
     Dates: start: 20010101
  29. ASPIRIN [Concomitant]
     Route: 048
  30. ASPIRIN [Concomitant]
     Route: 048
     Dates: start: 20011002
  31. PROMETRIUM [Concomitant]
     Indication: HYPERSENSITIVITY
     Route: 048
     Dates: start: 20010101, end: 20020101
  32. MOBIC [Concomitant]
     Route: 048
  33. PROMETHAZINE [Concomitant]
     Route: 048

REACTIONS (27)
  - ANAEMIA [None]
  - ANGINA UNSTABLE [None]
  - ANXIETY [None]
  - CARDIAC MURMUR [None]
  - CHEST DISCOMFORT [None]
  - CHEST PAIN [None]
  - CHOLELITHIASIS [None]
  - CORONARY ARTERY ATHEROSCLEROSIS [None]
  - CORONARY ARTERY STENOSIS [None]
  - DEPRESSION [None]
  - DIZZINESS [None]
  - DYSPNOEA [None]
  - DYSPNOEA PAROXYSMAL NOCTURNAL [None]
  - GASTROOESOPHAGEAL REFLUX DISEASE [None]
  - HYPERHIDROSIS [None]
  - HYPERTENSION [None]
  - MITRAL VALVE PROLAPSE [None]
  - MYOCARDIAL INFARCTION [None]
  - NAUSEA [None]
  - ORTHOPNOEA [None]
  - PAIN [None]
  - PALPITATIONS [None]
  - PANIC ATTACK [None]
  - PARAESTHESIA [None]
  - UTERINE LEIOMYOMA [None]
  - VAGINAL HAEMORRHAGE [None]
  - VISION BLURRED [None]
